FAERS Safety Report 8961527 (Version 1)
Quarter: 2012Q4

REPORT INFORMATION
  Report Type: 
  Country: BR (occurrence: BR)
  Receive Date: 20121213
  Receipt Date: 20121213
  Transmission Date: 20130627
  Serious: Yes (Hospitalization, Other)
  Sender: FDA-Public Use
  Company Number: PHHY2012BR114261

PATIENT
  Age: 61 Year
  Sex: Male
  Weight: 110 kg

DRUGS (7)
  1. DIOVAN TRIPLE [Suspect]
     Indication: BLOOD PRESSURE
     Dosage: 1 DF, Daily
     Dates: start: 20121108
  2. DIOVAN HCT [Suspect]
     Indication: HYPERTENSION
     Dosage: 1 DF (160/12.5 mg), daily
     Route: 048
     Dates: start: 20121106
  3. CITALOPRAM [Concomitant]
     Indication: ANXIETY
     Dosage: 20 mg, daily
     Route: 048
     Dates: start: 20121115
  4. NEBILET [Concomitant]
     Indication: BLOOD CHOLESTEROL ABNORMAL
     Dosage: 0.5 DF (5 mg), daily
     Route: 048
     Dates: start: 20121115
  5. GLIFAGE [Concomitant]
     Indication: DIABETES MELLITUS
     Dosage: 750 mg, daily
     Route: 048
     Dates: start: 20121115
  6. EZETIMIBE W/SIMVASTATIN [Concomitant]
     Indication: BLOOD CHOLESTEROL ABNORMAL
     Dosage: 1 DF (10/20 mg), Daily
     Route: 048
     Dates: start: 20121115
  7. LEXOTAN [Concomitant]
     Indication: SLEEP DISORDER
     Dosage: 3 mg, daily
     Route: 048
     Dates: start: 20121115

REACTIONS (2)
  - Diverticulitis [Recovering/Resolving]
  - Cerebrovascular accident [Recovered/Resolved]
